FAERS Safety Report 19475758 (Version 1)
Quarter: 2021Q2

REPORT INFORMATION
  Report Type: Spontaneous
  Country: US (occurrence: US)
  Receive Date: 20210630
  Receipt Date: 20210630
  Transmission Date: 20210717
  Serious: Yes (Life-Threatening, Hospitalization, Other)
  Sender: FDA-Public Use
  Company Number: US-LUPIN PHARMACEUTICALS INC.-2021-10511

PATIENT
  Age: 87 Year
  Sex: Female
  Weight: 84 kg

DRUGS (11)
  1. FRESH FROZEN PLASMA [Concomitant]
     Active Substance: HUMAN PLASMA
     Indication: COAGULOPATHY
     Dosage: UNK, 3 UNITS
     Route: 065
  2. LEVOFLOXACIN. [Suspect]
     Active Substance: LEVOFLOXACIN
     Indication: PNEUMONIA
     Dosage: UNK
     Route: 042
  3. PREDNISONE. [Concomitant]
     Active Substance: PREDNISONE
     Indication: COAGULOPATHY
     Dosage: 1 MILLIGRAM/KILOGRAM, QD
     Route: 048
  4. OCTREOTIDE. [Concomitant]
     Active Substance: OCTREOTIDE
     Indication: COAGULOPATHY
     Dosage: UNK
     Route: 065
  5. PANTOPRAZOLE [Concomitant]
     Active Substance: PANTOPRAZOLE
     Indication: EVIDENCE BASED TREATMENT
     Dosage: UNK UNK, BID
     Route: 042
  6. TAZOBACTAM [Suspect]
     Active Substance: TAZOBACTAM
     Indication: PNEUMONIA
     Dosage: UNK
     Route: 042
  7. PIPERACILLIN. [Suspect]
     Active Substance: PIPERACILLIN SODIUM
     Indication: PNEUMONIA
     Dosage: UNK
     Route: 042
  8. VITAMIN K [Concomitant]
     Active Substance: PHYTONADIONE
     Indication: COAGULOPATHY
     Dosage: 10 MILLIGRAM, QD, FOR 3 DAYS
     Route: 042
  9. IMMUNOGLOBULIN [Concomitant]
     Dosage: 1 G/KG, FOR 2 DAYS
  10. DEXAMETHASONE. [Concomitant]
     Active Substance: DEXAMETHASONE
     Indication: COAGULOPATHY
     Dosage: UNK
     Route: 042
  11. IMMUNOGLOBULIN [Concomitant]
     Indication: COAGULOPATHY
     Dosage: 25 GRAM, QD, FOR 5 DAYS
     Route: 042

REACTIONS (4)
  - Anaemia [Recovering/Resolving]
  - Retroperitoneal haematoma [Unknown]
  - Factor V inhibition [Recovering/Resolving]
  - Haematoma muscle [Unknown]
